FAERS Safety Report 10190220 (Version 2)
Quarter: 2014Q2

REPORT INFORMATION
  Report Type: Spontaneous
  Country: US (occurrence: US)
  Receive Date: 20140522
  Receipt Date: 20140530
  Transmission Date: 20141212
  Serious: Yes (Other)
  Sender: FDA-Public Use
  Company Number: PHHY2014US060346

PATIENT
  Age: 50 Year
  Sex: Female

DRUGS (4)
  1. MIRTAZAPINE [Suspect]
  2. CITALOPRAM [Concomitant]
     Indication: POST-TRAUMATIC STRESS DISORDER
  3. PREGABALIN [Concomitant]
  4. BUPROPION [Concomitant]

REACTIONS (3)
  - Motor dysfunction [Unknown]
  - Central obesity [Unknown]
  - Weight increased [Unknown]
